FAERS Safety Report 5370979-2 (Version None)
Quarter: 2007Q2

REPORT INFORMATION
  Report Type: 
  Country: None (occurrence: None)
  Receive Date: 20070626
  Receipt Date: 20070619
  Transmission Date: 20071010
  Serious: Yes (Hospitalization)
  Sender: FDA-Public Use
  Company Number: DE-PFIZER INC-2007035691

PATIENT
  Sex: Male
  Weight: 86 kg

DRUGS (2)
  1. LYRICA [Suspect]
     Indication: BACK PAIN
     Route: 048
     Dates: start: 20070301, end: 20070501
  2. LYRICA [Suspect]
     Indication: SURGERY

REACTIONS (2)
  - MIGRAINE [None]
  - TRANSAMINASES INCREASED [None]
